FAERS Safety Report 16875030 (Version 3)
Quarter: 2019Q4

REPORT INFORMATION
  Report Type: Report from Study
  Country: US (occurrence: US)
  Receive Date: 20191001
  Receipt Date: 20191202
  Transmission Date: 20200122
  Serious: Yes (Other)
  Sender: FDA-Public Use
  Company Number: US-ACTELION-A-US2017-155963

PATIENT
  Age: 48 Year
  Sex: Female
  Weight: 63.49 kg

DRUGS (4)
  1. REVATIO [Concomitant]
     Active Substance: SILDENAFIL CITRATE
  2. WARFARIN [Concomitant]
     Active Substance: WARFARIN
  3. VELETRI [Suspect]
     Active Substance: EPOPROSTENOL
     Dosage: 44.5 NG/KG, PER MIN
     Route: 042
  4. VELETRI [Suspect]
     Active Substance: EPOPROSTENOL
     Indication: PULMONARY ARTERIAL HYPERTENSION
     Dosage: 37 NG/KG, PER MIN
     Route: 042

REACTIONS (20)
  - Catheter site pruritus [Unknown]
  - Dyspnoea [Not Recovered/Not Resolved]
  - Back pain [Unknown]
  - Wrist fracture [Unknown]
  - Pain in extremity [Not Recovered/Not Resolved]
  - Epistaxis [Unknown]
  - Dyspnoea at rest [Not Recovered/Not Resolved]
  - Fall [Unknown]
  - Diarrhoea [Not Recovered/Not Resolved]
  - Pain in jaw [Not Recovered/Not Resolved]
  - Headache [Not Recovered/Not Resolved]
  - Neuropathy peripheral [Not Recovered/Not Resolved]
  - Dyspnoea exertional [Not Recovered/Not Resolved]
  - Nasal septum perforation [Unknown]
  - Nausea [Not Recovered/Not Resolved]
  - Hand fracture [Unknown]
  - Abdominal discomfort [Not Recovered/Not Resolved]
  - Catheter site discharge [Unknown]
  - Staphylococcal infection [Unknown]
  - Somnolence [Unknown]

NARRATIVE: CASE EVENT DATE: 201909
